FAERS Safety Report 4601477-9 (Version None)
Quarter: 2005Q1

REPORT INFORMATION
  Report Type: 
  Country: None (occurrence: None)
  Receive Date: 20050307
  Receipt Date: 20050307
  Transmission Date: 20050727
  Serious: Yes (Hospitalization)
  Sender: FDA-Public Use
  Company Number: None

PATIENT
  Sex: Male
  Weight: 58.514 kg

DRUGS (1)
  1. AMITRIPTYLINE 75 MG [Suspect]
     Dosage: 75 MG PO QHS
     Route: 048

REACTIONS (2)
  - ABNORMAL BEHAVIOUR [None]
  - DYSARTHRIA [None]
